FAERS Safety Report 16904263 (Version 2)
Quarter: 2019Q4

REPORT INFORMATION
  Report Type: Spontaneous
  Country: DE (occurrence: DE)
  Receive Date: 20191010
  Receipt Date: 20191216
  Transmission Date: 20200122
  Serious: Yes (Hospitalization, Other)
  Sender: FDA-Public Use
  Company Number: DE-B.I. PHARMACEUTICALS,INC./RIDGEFIELD-2019-12-105802

PATIENT
  Age: 67 Year
  Sex: Male
  Weight: 85 kg

DRUGS (3)
  1. PRADAXA [Suspect]
     Active Substance: DABIGATRAN ETEXILATE MESYLATE
     Indication: ATRIAL FIBRILLATION
     Dosage: 220 MG
     Route: 048
     Dates: start: 201603
  2. ASPIRIN. [Suspect]
     Active Substance: ASPIRIN
     Indication: VERTEBRAL ARTERY STENOSIS
     Dosage: 50 MG
     Route: 048
     Dates: start: 20160319
  3. ELIQUIS [Suspect]
     Active Substance: APIXABAN
     Indication: PRODUCT USED FOR UNKNOWN INDICATION
     Dosage: UNK
     Route: 065
     Dates: start: 201501, end: 20160315

REACTIONS (3)
  - Dizziness [Unknown]
  - Cerebellar stroke [Recovered/Resolved]
  - Cerebellar stroke [Unknown]

NARRATIVE: CASE EVENT DATE: 20160323
